FAERS Safety Report 13720675 (Version 1)
Quarter: 2017Q3

REPORT INFORMATION
  Report Type: Spontaneous
  Country: US (occurrence: US)
  Receive Date: 20170705
  Receipt Date: 20170705
  Transmission Date: 20171127
  Serious: No
  Sender: FDA-Public Use
  Company Number: None

PATIENT
  Age: 30 Year
  Sex: Female
  Weight: 45.4 kg

DRUGS (2)
  1. PRENATAL VITAMINS [Concomitant]
     Active Substance: VITAMINS
  2. MIRENA [Suspect]
     Active Substance: LEVONORGESTREL

REACTIONS (6)
  - Anxiety [None]
  - Emotional disorder [None]
  - Insomnia [None]
  - Depressed mood [None]
  - Acne [None]
  - Feeling abnormal [None]

NARRATIVE: CASE EVENT DATE: 20130201
